FAERS Safety Report 6161540-0 (Version None)
Quarter: 2009Q2

REPORT INFORMATION
  Report Type: 
  Country: None (occurrence: None)
  Receive Date: 20090421
  Receipt Date: 20090413
  Transmission Date: 20091009
  Serious: Yes (Death, Hospitalization, Other)
  Sender: FDA-Public Use
  Company Number: US-ELI_LILLY_AND_COMPANY-US200904002579

PATIENT
  Sex: Female

DRUGS (3)
  1. FORTEO [Suspect]
     Indication: OSTEOPOROSIS
     Dates: start: 20070101
  2. VITAMINS [Concomitant]
  3. VITAMIN D [Concomitant]

REACTIONS (4)
  - EMPHYSEMA [None]
  - HOSPITALISATION [None]
  - LUNG NEOPLASM MALIGNANT [None]
  - NASOPHARYNGITIS [None]
